FAERS Safety Report 8788647 (Version 1)
Quarter: 2012Q4

REPORT INFORMATION
  Report Type: 
  Country: US (occurrence: US)
  Receive Date: 20120917
  Receipt Date: 20120917
  Transmission Date: 20130627
  Serious: No
  Sender: FDA-Public Use
  Company Number: US-JNJFOC-20120902647

PATIENT
  Age: 49 None
  Sex: Male
  Weight: 81.65 kg

DRUGS (4)
  1. SANDOZ FENTANYL TRANSDERMAL SYSTEM [Suspect]
     Indication: BACK PAIN
     Route: 062
     Dates: start: 20120820
  2. LISINOPRIL [Concomitant]
     Indication: BLOOD PRESSURE
     Route: 048
  3. LIPITOR [Concomitant]
     Indication: BLOOD CHOLESTEROL
     Route: 048
  4. OXYCODONE [Concomitant]
     Indication: BACK PAIN
     Dosage: 2-5 mg/ every 6 hours/ as needed
     Route: 048
     Dates: start: 20120820

REACTIONS (5)
  - Drug ineffective [Not Recovered/Not Resolved]
  - Wrong technique in drug usage process [Recovered/Resolved]
  - Feeling abnormal [Unknown]
  - Headache [Unknown]
  - Feeling hot [Unknown]
